FAERS Safety Report 15761508 (Version 3)
Quarter: 2025Q2

REPORT INFORMATION
  Report Type: Spontaneous
  Country: US (occurrence: US)
  Receive Date: 20181226
  Receipt Date: 20250519
  Transmission Date: 20250716
  Serious: Yes (Death, Hospitalization)
  Sender: VERTEX
  Company Number: US-VERTEX PHARMACEUTICALS-2018-009457

PATIENT
  Age: 30 Year
  Sex: Female

DRUGS (14)
  1. SYMDEKO [Suspect]
     Active Substance: IVACAFTOR\TEZACAFTOR
     Indication: Cystic fibrosis
     Dosage: 100MG TEZACAFTOR/150MG IVACAFTOR; 150MG IVACAFTOR, BID
     Route: 048
     Dates: start: 20180502, end: 20181207
  2. OMEPRAZOLE [Concomitant]
     Active Substance: OMEPRAZOLE
  3. VANCOMYCIN [Concomitant]
     Active Substance: VANCOMYCIN
  4. ZENPEP [Concomitant]
     Active Substance: PANCRELIPASE AMYLASE\PANCRELIPASE LIPASE\PANCRELIPASE PROTEASE
  5. PULMOZYME [Concomitant]
     Active Substance: DORNASE ALFA
  6. MONTELUKAST [Concomitant]
     Active Substance: MONTELUKAST
  7. KITABIS PAK [Concomitant]
     Active Substance: TOBRAMYCIN
  8. AZITHROMYCIN [Concomitant]
     Active Substance: AZITHROMYCIN
  9. FUROSEMIDE [Concomitant]
     Active Substance: FUROSEMIDE
  10. CYPROHEPTADINE [Concomitant]
     Active Substance: CYPROHEPTADINE
  11. LEVOTHYROXINE [Concomitant]
     Active Substance: LEVOTHYROXINE
  12. LEVOFLOXACIN [Concomitant]
     Active Substance: LEVOFLOXACIN
  13. LANTUS [Concomitant]
     Active Substance: INSULIN GLARGINE
  14. LINEZOLID [Concomitant]
     Active Substance: LINEZOLID

REACTIONS (7)
  - Death [Fatal]
  - Pulmonary haemorrhage [Not Recovered/Not Resolved]
  - Product dose omission issue [Not Recovered/Not Resolved]
  - Hypophagia [Unknown]
  - Bronchial secretion retention [Not Recovered/Not Resolved]
  - Weight decreased [Unknown]
  - Gastrointestinal obstruction [Unknown]

NARRATIVE: CASE EVENT DATE: 20181201
